FAERS Safety Report 24554955 (Version 1)
Quarter: 2024Q4

REPORT INFORMATION
  Report Type: Spontaneous
  Country: FR (occurrence: FR)
  Receive Date: 20241028
  Receipt Date: 20241028
  Transmission Date: 20250115
  Serious: Yes (Other)
  Sender: SANOFI AVENTIS
  Company Number: FR-BIOVITRUM-2024-FR-013443

PATIENT
  Age: 51 Year
  Weight: 94 kg

DRUGS (2)
  1. ALPROLIX [Suspect]
     Active Substance: EFTRENONACOG ALFA
     Indication: Factor IX deficiency
     Dosage: 42 IU/KG, Q15D
     Route: 065
  2. ALPROLIX [Suspect]
     Active Substance: EFTRENONACOG ALFA
     Indication: Factor IX deficiency
     Dosage: 42 IU/KG, Q15D
     Route: 065

REACTIONS (2)
  - Haemophilic arthropathy [Unknown]
  - Off label use [Unknown]
